FAERS Safety Report 21214193 (Version 1)
Quarter: 2022Q3

REPORT INFORMATION
  Report Type: Spontaneous
  Country: US (occurrence: US)
  Receive Date: 20220816
  Receipt Date: 20220816
  Transmission Date: 20221027
  Serious: Yes (Hospitalization)
  Sender: FDA-Public Use
  Company Number: US-NOVOPROD-945958

PATIENT
  Sex: Female

DRUGS (1)
  1. NOVOLOG [Suspect]
     Active Substance: INSULIN ASPART
     Indication: Product used for unknown indication
     Dosage: UNK
     Route: 058

REACTIONS (7)
  - Ketoacidosis [Recovered/Resolved]
  - Alopecia [Recovered/Resolved]
  - Hair colour changes [Not Recovered/Not Resolved]
  - Asthenia [Not Recovered/Not Resolved]
  - Injection site bruising [Recovered/Resolved]
  - Feeling abnormal [Not Recovered/Not Resolved]
  - Product communication issue [Unknown]
